FAERS Safety Report 25248236 (Version 4)
Quarter: 2025Q3

REPORT INFORMATION
  Report Type: Report from Study
  Country: US (occurrence: US)
  Receive Date: 20250429
  Receipt Date: 20250730
  Transmission Date: 20251021
  Serious: No
  Sender: DECIPHERA PHARMACEUTICALS
  Company Number: US-DECIPHERA PHARMACEUTICALS LLC-2025US000358

PATIENT
  Age: 42 Year
  Sex: Female

DRUGS (1)
  1. ROMVIMZA [Suspect]
     Active Substance: VIMSELTINIB
     Indication: Giant cell tumour of tendon sheath
     Dosage: 30 MILLIGRAM, TWICE WEEKLY (Q72, WITH A MINIMUM OF 72 HOURS BETWEEN DOSES)
     Route: 048
     Dates: start: 20250409

REACTIONS (10)
  - Peripheral swelling [Unknown]
  - Periorbital oedema [Not Recovered/Not Resolved]
  - Fall [Unknown]
  - Arthritis infective [Recovering/Resolving]
  - Diarrhoea [Unknown]
  - Joint swelling [Recovering/Resolving]
  - Heavy menstrual bleeding [Unknown]
  - Arthralgia [Unknown]
  - Eczema [Not Recovered/Not Resolved]
  - Fatigue [Not Recovered/Not Resolved]

NARRATIVE: CASE EVENT DATE: 20250101
